FAERS Safety Report 4582960-1 (Version None)
Quarter: 2005Q1

REPORT INFORMATION
  Report Type: 
  Country: None (occurrence: None)
  Receive Date: 20050127
  Receipt Date: 20040916
  Transmission Date: 20050727
  Serious: No
  Sender: FDA-Public Use
  Company Number: USA040978618

PATIENT
  Age: 13 Year
  Sex: Female
  Weight: 45 kg

DRUGS (2)
  1. STRATTERA [Suspect]
     Indication: ATTENTION DEFICIT/HYPERACTIVITY DISORDER
     Dosage: 25 MG DAY
     Dates: start: 20040801
  2. ADDERALL 10 [Concomitant]

REACTIONS (2)
  - DEPRESSED MOOD [None]
  - DEPRESSION [None]
